FAERS Safety Report 22313487 (Version 5)
Quarter: 2023Q4

REPORT INFORMATION
  Report Type: Report from Study
  Country: KR (occurrence: None)
  Receive Date: 20230512
  Receipt Date: 20231124
  Transmission Date: 20240110
  Serious: Yes (Hospitalization)
  Sender: FDA-Public Use
  Company Number: KR-ROCHE-3348330

PATIENT
  Age: 60 Year
  Sex: Male

DRUGS (17)
  1. ATEZOLIZUMAB [Suspect]
     Active Substance: ATEZOLIZUMAB
     Indication: Colorectal cancer
     Dosage: SUBSEQUENT DOSES: 11/MAY/2023, 31/MAY/2023, 21/JUN/2023, 13/JUL/2023, 03/AUG/2023, 31/JUL/2023
     Route: 041
     Dates: start: 20230421
  2. ZANZALINTINIB [Suspect]
     Active Substance: ZANZALINTINIB
     Indication: Colorectal cancer
     Dosage: ON 02/MAY/2023, HE RECEIVED THE MOST RECENT DOSE OF XL092 PRIOR TO AE/SAE
     Route: 048
     Dates: start: 20230421, end: 20230510
  3. ZANZALINTINIB [Suspect]
     Active Substance: ZANZALINTINIB
     Route: 048
     Dates: start: 20230511, end: 20230530
  4. ZANZALINTINIB [Suspect]
     Active Substance: ZANZALINTINIB
     Route: 048
     Dates: start: 20230531, end: 20230620
  5. ZANZALINTINIB [Suspect]
     Active Substance: ZANZALINTINIB
     Route: 048
     Dates: start: 20230621, end: 20230712
  6. ZANZALINTINIB [Suspect]
     Active Substance: ZANZALINTINIB
     Route: 048
     Dates: start: 20230713, end: 20230802
  7. ZANZALINTINIB [Suspect]
     Active Substance: ZANZALINTINIB
     Route: 048
     Dates: start: 20230803, end: 20230823
  8. NALOXONE HYDROCHLORIDE\OXYCODONE HYDROCHLORIDE [Concomitant]
     Active Substance: NALOXONE HYDROCHLORIDE\OXYCODONE HYDROCHLORIDE
     Dates: start: 20230315
  9. TOVIAZ [Concomitant]
     Active Substance: FESOTERODINE FUMARATE
     Dates: start: 20230126
  10. FERROUS SULFATE [Concomitant]
     Active Substance: FERROUS SULFATE
  11. LYRICA CR [Concomitant]
     Active Substance: PREGABALIN
     Dates: start: 20200420, end: 20230405
  12. LYRICA CR [Concomitant]
     Active Substance: PREGABALIN
     Dates: start: 20230126
  13. ACETYLCYSTEINE [Concomitant]
     Active Substance: ACETYLCYSTEINE
     Dates: start: 20221126
  14. DARBEPOETIN ALFA [Concomitant]
     Active Substance: DARBEPOETIN ALFA
     Dates: start: 20230405, end: 20230405
  15. MAGNESIUM OXIDE [Concomitant]
     Active Substance: MAGNESIUM OXIDE
     Dates: start: 20210211
  16. MIRABEGRON [Concomitant]
     Active Substance: MIRABEGRON
     Dates: start: 20230126
  17. FENTANYL CITRATE [Concomitant]
     Active Substance: FENTANYL CITRATE
     Dates: start: 20230105

REACTIONS (1)
  - Hyperkalaemia [Recovered/Resolved]

NARRATIVE: CASE EVENT DATE: 20230502
